FAERS Safety Report 5452752-X (Version None)
Quarter: 2007Q3

REPORT INFORMATION
  Report Type: 
  Country: None (occurrence: None)
  Receive Date: 20070914
  Receipt Date: 20070906
  Transmission Date: 20080115
  Serious: Yes (Death)
  Sender: FDA-Public Use
  Company Number: FR-MERCK-0709USA01124

PATIENT
  Age: 60 Year
  Sex: Male

DRUGS (2)
  1. HYDROCORTONE [Suspect]
     Route: 042
  2. DEXCHLORPHENIRAMINE MALEATE [Concomitant]
     Route: 042

REACTIONS (2)
  - ARTERIOSPASM CORONARY [None]
  - MULTI-ORGAN FAILURE [None]
